FAERS Safety Report 11036782 (Version 1)
Quarter: 2015Q2

REPORT INFORMATION
  Report Type: Report from Study
  Country: US (occurrence: US)
  Receive Date: 20150416
  Receipt Date: 20150416
  Transmission Date: 20150821
  Serious: Yes (Hospitalization, Other)
  Sender: FDA-Public Use
  Company Number: US-ROCHE-773761

PATIENT
  Age: 62 Year
  Sex: Male
  Weight: 132.4 kg

DRUGS (1)
  1. VISMODEGIB [Suspect]
     Active Substance: VISMODEGIB
     Indication: GLIOBLASTOMA MULTIFORME
     Dosage: DATE LAST DOSE:17 MAR11?150 MG QD X 7 DAYS,PRIOR TO SURGICAL RESECTION,RESTART WITHIN 28D POST OPERA
     Route: 048
     Dates: start: 20110308, end: 20110317

REACTIONS (2)
  - Embolism [Recovered/Resolved with Sequelae]
  - Atrial flutter [Recovered/Resolved with Sequelae]

NARRATIVE: CASE EVENT DATE: 20110311
